FAERS Safety Report 15432020 (Version 2)
Quarter: 2018Q4

REPORT INFORMATION
  Report Type: Report from Study
  Country: US (occurrence: US)
  Receive Date: 20180926
  Receipt Date: 20181010
  Transmission Date: 20190204
  Serious: Yes (Death)
  Sender: FDA-Public Use
  Company Number: US-CELGENEUS-USA-20180909080

PATIENT
  Age: 66 Year
  Sex: Female
  Weight: 92.65 kg

DRUGS (4)
  1. ACETAMINOPHEN. [Concomitant]
     Active Substance: ACETAMINOPHEN
     Indication: PAIN
     Dosage: 500 MILLIGRAM
     Route: 048
     Dates: start: 20170420, end: 20170602
  2. BENADRYL [Concomitant]
     Active Substance: DIPHENHYDRAMINE HYDROCHLORIDE
     Indication: MULTIPLE ALLERGIES
     Dosage: 25 MILLIGRAM
     Route: 048
     Dates: start: 20170420, end: 20170424
  3. VIDAZA [Suspect]
     Active Substance: AZACITIDINE
     Indication: MYELODYSPLASTIC SYNDROME
     Dosage: 75 MILLIGRAM/SQ. METER
     Route: 042
  4. VIDAZA [Suspect]
     Active Substance: AZACITIDINE
     Dosage: 15.8 MILLIGRAM
     Route: 041
     Dates: start: 20170501, end: 20170503

REACTIONS (1)
  - Myelodysplastic syndrome [Fatal]

NARRATIVE: CASE EVENT DATE: 20170621
